FAERS Safety Report 19429630 (Version 2)
Quarter: 2021Q3

REPORT INFORMATION
  Report Type: Spontaneous
  Country: IT (occurrence: IT)
  Receive Date: 20210617
  Receipt Date: 20210715
  Transmission Date: 20211014
  Serious: Yes (Other)
  Sender: FDA-Public Use
  Company Number: IT-BAYER-2021-157000

PATIENT
  Age: 60 Year
  Sex: Male

DRUGS (9)
  1. KEPPRA [Concomitant]
     Active Substance: LEVETIRACETAM
     Dosage: UNK
  2. ESKIM [Concomitant]
     Active Substance: OMEGA-3 FATTY ACIDS
     Dosage: UNK
  3. STIVARGA [Suspect]
     Active Substance: REGORAFENIB
     Indication: GLIOBLASTOMA
     Dosage: DAILY DOSE 80 MG
     Dates: start: 20210406
  4. XATRAL [Concomitant]
     Active Substance: ALFUZOSIN
     Dosage: UNK
  5. OMEPRAZOLE. [Concomitant]
     Active Substance: OMEPRAZOLE
     Dosage: UNK
  6. STIVARGA [Suspect]
     Active Substance: REGORAFENIB
     Indication: GLIOBLASTOMA
     Dosage: UNK
  7. SOLDESAM [Concomitant]
     Active Substance: DEXAMETHASONE
     Dosage: UNK
  8. COUMADIN [Concomitant]
     Active Substance: WARFARIN SODIUM
     Dosage: UNK
  9. SINVASTIN [Concomitant]
     Active Substance: SIMVASTATIN
     Dosage: UNK

REACTIONS (5)
  - Lipase increased [Recovering/Resolving]
  - Off label use [None]
  - Lipase increased [Recovering/Resolving]
  - Glioblastoma [None]
  - Amylase increased [Recovering/Resolving]

NARRATIVE: CASE EVENT DATE: 20210406
